FAERS Safety Report 11244803 (Version 3)
Quarter: 2015Q3

REPORT INFORMATION
  Report Type: Spontaneous
  Country: US (occurrence: US)
  Receive Date: 20150707
  Receipt Date: 20150903
  Transmission Date: 20151125
  Serious: No
  Sender: FDA-Public Use
  Company Number: US-009507513-1506USA012148

PATIENT
  Age: 20 Year
  Sex: Female
  Weight: 89.34 kg

DRUGS (3)
  1. NEXPLANON [Suspect]
     Active Substance: ETONOGESTREL
     Indication: CONTRACEPTION
     Dosage: EVERY 3 YEARS
     Route: 059
     Dates: start: 201503
  2. WELLBUTRIN [Concomitant]
     Active Substance: BUPROPION HYDROCHLORIDE
     Dosage: UNK
  3. LITHIUM. [Concomitant]
     Active Substance: LITHIUM
     Dosage: UNK

REACTIONS (6)
  - Implant site mass [Unknown]
  - Implant site rash [Recovered/Resolved]
  - Implant site pruritus [Unknown]
  - Device breakage [Not Recovered/Not Resolved]
  - Amenorrhoea [Recovered/Resolved]
  - Menstruation normal [Unknown]

NARRATIVE: CASE EVENT DATE: 2015
